FAERS Safety Report 10992417 (Version 1)
Quarter: 2015Q2

REPORT INFORMATION
  Report Type: Spontaneous
  Country: US (occurrence: US)
  Receive Date: 20150406
  Receipt Date: 20150406
  Transmission Date: 20150821
  Serious: Yes (Hospitalization)
  Sender: FDA-Public Use
  Company Number: US-ALLERGAN-1505839US

PATIENT
  Age: 67 Year
  Sex: Female

DRUGS (1)
  1. RESTASIS [Suspect]
     Active Substance: CYCLOSPORINE
     Indication: PRODUCT USED FOR UNKNOWN INDICATION
     Route: 047

REACTIONS (6)
  - Sjogren^s syndrome [Unknown]
  - Respiratory disorder [Unknown]
  - Herpes ophthalmic [Unknown]
  - Eye pruritus [Unknown]
  - Lacrimation disorder [Unknown]
  - Sneezing [Unknown]
